FAERS Safety Report 19721871 (Version 2)
Quarter: 2021Q3

REPORT INFORMATION
  Report Type: Spontaneous
  Country: US (occurrence: US)
  Receive Date: 20210819
  Receipt Date: 20210827
  Transmission Date: 20211014
  Serious: Yes (Hospitalization, Disabling, Other)
  Sender: FDA-Public Use
  Company Number: US-ADVANZ PHARMA-202108005718

PATIENT

DRUGS (5)
  1. PREDNISONE. [Suspect]
     Active Substance: PREDNISONE
     Indication: IMMUNOSUPPRESSANT DRUG THERAPY
     Dosage: UNK
     Route: 065
  2. HYDROXYCHLOROQUINE [Suspect]
     Active Substance: HYDROXYCHLOROQUINE
     Indication: SJOGREN^S SYNDROME
  3. PREDNISONE. [Suspect]
     Active Substance: PREDNISONE
     Indication: SJOGREN^S SYNDROME
  4. HYDROXYCHLOROQUINE [Suspect]
     Active Substance: HYDROXYCHLOROQUINE
     Indication: IMMUNOSUPPRESSANT DRUG THERAPY
     Dosage: UNK
     Route: 065
  5. OXYGEN. [Concomitant]
     Active Substance: OXYGEN
     Indication: RESPIRATORY FAILURE
     Dosage: 3 L

REACTIONS (12)
  - Nocardiosis [Recovering/Resolving]
  - Visual impairment [Recovering/Resolving]
  - Eye infection bacterial [Recovering/Resolving]
  - Condition aggravated [Recovering/Resolving]
  - Chorioretinitis [Recovering/Resolving]
  - Uveitis [Recovering/Resolving]
  - Blindness [Recovering/Resolving]
  - Eye pain [Recovering/Resolving]
  - Eye abscess [Recovering/Resolving]
  - Candida endophthalmitis [Recovering/Resolving]
  - Vasogenic cerebral oedema [Recovering/Resolving]
  - Oral candidiasis [Recovering/Resolving]
